FAERS Safety Report 5913302-4 (Version None)
Quarter: 2008Q4

REPORT INFORMATION
  Report Type: 
  Country: None (occurrence: None)
  Receive Date: 20081008
  Receipt Date: 20081008
  Transmission Date: 20090506
  Serious: Yes (Life-Threatening, Hospitalization)
  Sender: FDA-Public Use
  Company Number: None

PATIENT
  Age: 46 Year
  Sex: Male
  Weight: 74.8435 kg

DRUGS (1)
  1. CHANTIX [Suspect]
     Indication: TOBACCO USER
     Dates: start: 20080115, end: 20080315

REACTIONS (6)
  - AGITATION [None]
  - INTENTIONAL OVERDOSE [None]
  - LOSS OF EMPLOYMENT [None]
  - NERVOUSNESS [None]
  - NIGHTMARE [None]
  - SUICIDE ATTEMPT [None]
